FAERS Safety Report 13576273 (Version 1)
Quarter: 2017Q2

REPORT INFORMATION
  Report Type: Report from Study
  Country: US (occurrence: US)
  Receive Date: 20170524
  Receipt Date: 20170524
  Transmission Date: 20170830
  Serious: No
  Sender: FDA-Public Use
  Company Number: PHEH2017US015271

PATIENT
  Sex: Female

DRUGS (1)
  1. SANDOSTATIN LAR DEPOT [Suspect]
     Active Substance: OCTREOTIDE ACETATE
     Indication: PRODUCT USED FOR UNKNOWN INDICATION
     Dosage: 30 MG, EVERY 21 DAYS
     Route: 042

REACTIONS (7)
  - Flushing [Unknown]
  - Inappropriate schedule of drug administration [Unknown]
  - Incorrect route of drug administration [Unknown]
  - Abdominal pain upper [Unknown]
  - Fatigue [Unknown]
  - Diarrhoea [Unknown]
  - Cough [Unknown]
